FAERS Safety Report 6023980-X (Version None)
Quarter: 2008Q4

REPORT INFORMATION
  Report Type: 
  Country: None (occurrence: None)
  Receive Date: 20081230
  Receipt Date: 20081225
  Transmission Date: 20090506
  Serious: Yes (Other)
  Sender: FDA-Public Use
  Company Number: JP-B.I. PHARMACEUTICALS,INC./RIDGEFIELD-2008-DE-07929GD

PATIENT

DRUGS (2)
  1. DIPYRIDAMOLE [Suspect]
  2. ASPIRIN [Suspect]
     Dosage: LOW-DOSE

REACTIONS (1)
  - PEPTIC ULCER HAEMORRHAGE [None]
